FAERS Safety Report 8835192 (Version 1)
Quarter: 2012Q4

REPORT INFORMATION
  Report Type: 
  Country: GB (occurrence: GB)
  Receive Date: 20121011
  Receipt Date: 20121011
  Transmission Date: 20130627
  Serious: Yes (Other)
  Sender: FDA-Public Use
  Company Number: GB-PFIZER INC-2012245861

PATIENT
  Age: 25 Year
  Sex: Female

DRUGS (1)
  1. CLINDAMYCIN PHOSPHATE [Suspect]
     Indication: PROPHYLAXIS
     Dosage: 500 mg unit dose
     Route: 042
     Dates: start: 20120919, end: 2012

REACTIONS (5)
  - Thrombophlebitis [Recovering/Resolving]
  - Oedema peripheral [Unknown]
  - Catheter site pain [Unknown]
  - Erythema [Unknown]
  - Skin discolouration [Unknown]
